FAERS Safety Report 4367890-2 (Version None)
Quarter: 2004Q2

REPORT INFORMATION
  Report Type: 
  Country: None (occurrence: None)
  Receive Date: 20040601
  Receipt Date: 20040601
  Transmission Date: 20050107
  Serious: Yes (Other)
  Sender: FDA-Public Use
  Company Number: None

PATIENT
  Sex: Male
  Weight: 81.6475 kg

DRUGS (1)
  1. CIALIS [Suspect]
     Dosage: CIALSI X 1 PO 20 MG
     Route: 048
     Dates: start: 20040515, end: 20040515

REACTIONS (1)
  - DYSPEPSIA [None]
